FAERS Safety Report 8593766-0 (Version None)
Quarter: 2012Q3

REPORT INFORMATION
  Report Type: 
  Country: None (occurrence: None)
  Receive Date: 20120814
  Receipt Date: 20120808
  Transmission Date: 20120928
  Serious: Yes (Other)
  Sender: FDA-Public Use
  Company Number: JP-VERTEX PHARMACEUTICALS INC.-AE-2012-012040

PATIENT
  Age: 63 Year
  Sex: Female

DRUGS (5)
  1. PEG-INTRON [Concomitant]
     Route: 058
  2. PEG-INTRON [Concomitant]
     Indication: HEPATITIS C
     Route: 058
     Dates: start: 20120203, end: 20120224
  3. NERISONE [Concomitant]
     Route: 061
     Dates: start: 20120206, end: 20120224
  4. TELAVIC (TELAPREVIR) [Suspect]
     Indication: HEPATITIS C
     Dates: start: 20120203, end: 20120224
  5. REBETOL [Concomitant]
     Indication: HEPATITIS C
     Route: 048
     Dates: start: 20120203, end: 20120217

REACTIONS (3)
  - PSYCHIATRIC SYMPTOM [None]
  - DECREASED APPETITE [None]
  - ERYTHEMA [None]
